FAERS Safety Report 17729844 (Version 2)
Quarter: 2020Q3

REPORT INFORMATION
  Report Type: Spontaneous
  Country: US (occurrence: US)
  Receive Date: 20200430
  Receipt Date: 20200729
  Transmission Date: 20201102
  Serious: No
  Sender: FDA-Public Use
  Company Number: US-FLEXION THERAPEUTICS, INC.-2020FLS000034

PATIENT
  Age: 73 Year
  Sex: Male

DRUGS (6)
  1. JANUVIA [Concomitant]
     Active Substance: SITAGLIPTIN PHOSPHATE
     Indication: TYPE 2 DIABETES MELLITUS
  2. ZILRETTA [Suspect]
     Active Substance: TRIAMCINOLONE ACETONIDE
     Indication: OSTEOARTHRITIS
     Dosage: LEFT KNEE
     Route: 014
     Dates: start: 202001, end: 202001
  3. ZILRETTA [Suspect]
     Active Substance: TRIAMCINOLONE ACETONIDE
     Dosage: LEFT KNEE
     Route: 014
     Dates: start: 201911, end: 201911
  4. LIPITOR [Concomitant]
     Active Substance: ATORVASTATIN CALCIUM
     Indication: BLOOD CHOLESTEROL INCREASED
  5. ZILRETTA [Suspect]
     Active Substance: TRIAMCINOLONE ACETONIDE
     Dosage: LEFT KNEE
     Route: 014
     Dates: start: 201907, end: 201907
  6. COREG [Concomitant]
     Active Substance: CARVEDILOL
     Indication: BLOOD PRESSURE ABNORMAL

REACTIONS (4)
  - Hyperhidrosis [Unknown]
  - Therapeutic response shortened [Recovered/Resolved]
  - Arthralgia [Not Recovered/Not Resolved]
  - Miliaria [Unknown]
